FAERS Safety Report 6958397-4 (Version None)
Quarter: 2010Q3

REPORT INFORMATION
  Report Type: 
  Country: None (occurrence: None)
  Receive Date: 20100831
  Receipt Date: 20100420
  Transmission Date: 20110219
  Serious: Yes (Hospitalization)
  Sender: FDA-Public Use
  Company Number: NL-ROCHE-698528

PATIENT
  Sex: Male

DRUGS (10)
  1. RITUXIMAB [Suspect]
     Dosage: FREQUENCY: ONCE, FORM: INFUSION.
     Route: 042
     Dates: start: 20091205
  2. MYCOPHENOLATE MOFETIL [Suspect]
     Indication: IMMUNOSUPPRESSION
     Route: 065
     Dates: start: 20091205
  3. TACROLIMUS [Suspect]
     Indication: IMMUNOSUPPRESSION
     Route: 065
     Dates: start: 20091205
  4. PREDNISONE [Concomitant]
     Dates: start: 20091205
  5. COTRIM [Concomitant]
     Dates: start: 20091207
  6. METOPROLOL TARTRATE [Concomitant]
     Dates: start: 20090801
  7. CARBASALATUM CALCIUM [Concomitant]
     Dates: start: 20091214
  8. ALFACALCIDOL [Concomitant]
     Dates: start: 20091214
  9. POTASSIUM PHOSPHATES [Concomitant]
     Dates: start: 20091221
  10. RANITIDINE HCL [Concomitant]
     Dates: start: 20091204

REACTIONS (1)
  - CYTOMEGALOVIRUS INFECTION [None]
